FAERS Safety Report 5161152-1 (Version None)
Quarter: 2006Q4

REPORT INFORMATION
  Report Type: 
  Country: None (occurrence: None)
  Receive Date: 20061130
  Receipt Date: 20060824
  Transmission Date: 20070319
  Serious: Yes (Hospitalization, Other)
  Sender: FDA-Public Use
  Company Number: US-ELI_LILLY_AND_COMPANY-US200609000249

PATIENT
  Age: 35 Year
  Sex: Female
  Weight: 131.97 kg

DRUGS (11)
  1. ZYPREXA [Suspect]
     Indication: MENTAL DISORDER
     Dosage: 20 MG, UNKNOWN
     Dates: start: 19990101, end: 20020101
  2. ZYPREXA [Suspect]
     Dosage: 40 MG, UNKNOWN
     Dates: start: 20020101
  3. ABILIFY [Concomitant]
     Dosage: UNK, UNKNOWN
     Dates: start: 20060101
  4. SEROQUEL [Concomitant]
     Dosage: UNK, UNKNOWN
     Dates: start: 20060101
  5. GEODON [Concomitant]
     Dosage: UNK, UNKNOWN
     Dates: start: 20060101
  6. WELLBUTRIN [Concomitant]
     Dosage: UNK, UNKNOWN
     Dates: start: 20060101
  7. CELEXA [Concomitant]
     Dosage: UNK, UNKNOWN
     Dates: start: 20030101
  8. DOXEPIN HCL [Concomitant]
     Dosage: UNK, UNKNOWN
     Dates: start: 20050101
  9. PAXIL [Concomitant]
     Dosage: UNK, UNKNOWN
     Dates: start: 20030101
  10. EFFEXOR [Concomitant]
     Dosage: UNK, UNKNOWN
  11. PREDNISONE TAB [Concomitant]
     Dosage: UNK, AS NEEDED
     Dates: start: 19960101

REACTIONS (8)
  - DIABETES MELLITUS [None]
  - HYPERLIPIDAEMIA [None]
  - HYPERTENSION [None]
  - METABOLIC DISORDER [None]
  - NEPHROLITHIASIS [None]
  - PANCREATITIS [None]
  - PRESCRIBED OVERDOSE [None]
  - RENAL DISORDER [None]
